FAERS Safety Report 7200643 (Version 6)
Quarter: 2013Q3

REPORT INFORMATION
  Report Type: Report from Study
  Country: JP (occurrence: JP)
  Receive Date: 20091204
  Receipt Date: 20130701
  Transmission Date: 20140515
  Serious: Yes (Death, Life-Threatening, Hospitalization, Other)
  Sender: FDA-Public Use
  Company Number: JP-BRISTOL-MYERS SQUIBB COMPANY-14821268

PATIENT
  Age: 55 Year
  Sex: Female
  Weight: 44 kg

DRUGS (17)
  1. SPRYCEL [Suspect]
     Indication: ACUTE LYMPHOCYTIC LEUKAEMIA
     Dosage: INTERRUPT ON 21APR09?RESTART ON 20MAY AT 50MG 2/1D?100 MG 1/1 D FROM 30JUN
     Route: 048
     Dates: start: 20090327
  2. FK-506 [Suspect]
  3. MAXIPIME FOR INJ [Concomitant]
     Indication: PNEUMONIA
     Dosage: 28APR2009
     Route: 042
     Dates: start: 20090407, end: 20090901
  4. FUNGUARD [Concomitant]
     Indication: PNEUMONIA
     Dosage: INJ?28APR2009
     Route: 042
     Dates: start: 20090410, end: 20090913
  5. AMIKACIN SULFATE INJ [Concomitant]
     Indication: PNEUMONIA
     Route: 042
     Dates: start: 20090408, end: 20090421
  6. VITAMIN B1 [Concomitant]
     Route: 042
     Dates: start: 20090614, end: 20090621
  7. GLUCOSE [Concomitant]
     Route: 042
     Dates: start: 20090614, end: 20090621
  8. AMINO ACID + ELECTROLYTES [Concomitant]
     Route: 042
     Dates: start: 20090614, end: 20090621
  9. PLATELET CONCENTRATE [Concomitant]
     Dates: start: 20090421, end: 20090421
  10. GANCICLOVIR [Concomitant]
     Dosage: FORMULATION: INJ
     Route: 042
     Dates: start: 20090827, end: 20090901
  11. FOSCARNET SODIUM [Concomitant]
     Dosage: FORMULATION INJ,  ALSO 180MG/D FROM02SEP-04OCT09
     Route: 042
     Dates: start: 20090901, end: 20090902
  12. OSELTAMIVIR PHOSPHATE [Concomitant]
     Route: 048
     Dates: start: 20090902, end: 20091004
  13. MEROPENEM [Concomitant]
     Dosage: FORMULATION: INJ
     Route: 042
     Dates: start: 20090901, end: 20090913
  14. CIPROFLOXACIN [Concomitant]
     Dosage: FORMULATION: INJ
     Route: 042
     Dates: start: 20090902, end: 20091004
  15. TAZOBACTAM SODIUM [Concomitant]
     Dosage: FORMULATION: INJ
     Route: 042
     Dates: start: 20090913, end: 20091004
  16. PIPERACILLIN [Concomitant]
     Dosage: FORMULATION: INJ
     Route: 042
     Dates: start: 20090913, end: 20091004
  17. METHYLPREDNISOLONE SODIUM SUCCINATE [Concomitant]
     Dosage: 1G/BODY,FORMULATION: INJ
     Route: 042
     Dates: start: 20090903, end: 20091004

REACTIONS (16)
  - Histiocytosis haematophagic [Fatal]
  - Epstein-Barr virus infection [Fatal]
  - Interstitial lung disease [Not Recovered/Not Resolved]
  - Influenza [Recovered/Resolved]
  - Decreased appetite [Not Recovered/Not Resolved]
  - Cytomegalovirus infection [Recovered/Resolved]
  - Pneumonia [Recovered/Resolved]
  - Graft versus host disease [Recovered/Resolved]
  - Diarrhoea [Not Recovered/Not Resolved]
  - Pleural effusion [Recovering/Resolving]
  - White blood cell count decreased [Recovered/Resolved]
  - Platelet count decreased [Recovering/Resolving]
  - Anaemia [Not Recovered/Not Resolved]
  - Alanine aminotransferase increased [Recovering/Resolving]
  - Pyrexia [Recovering/Resolving]
  - Nausea [Unknown]
